FAERS Safety Report 22602487 (Version 1)
Quarter: 2023Q2

REPORT INFORMATION
  Report Type: Report from Study
  Country: US (occurrence: US)
  Receive Date: 20230614
  Receipt Date: 20230614
  Transmission Date: 20230721
  Serious: Yes (Hospitalization)
  Sender: FDA-Public Use
  Company Number: US-ABBVIE-5288498

PATIENT
  Age: 30 Year
  Sex: Male
  Weight: 84.3 kg

DRUGS (2)
  1. HUMIRA [Suspect]
     Active Substance: ADALIMUMAB
     Indication: Colitis ulcerative
     Dosage: FORM STRENGTH: 40 MILLIGRAM
     Route: 058
     Dates: start: 20220516, end: 20230529
  2. METHOTREXATE [Concomitant]
     Active Substance: METHOTREXATE
     Indication: White blood cell count abnormal

REACTIONS (4)
  - Colitis ulcerative [Recovering/Resolving]
  - White blood cell count increased [Unknown]
  - Inflammation [Recovering/Resolving]
  - Drug ineffective [Unknown]

NARRATIVE: CASE EVENT DATE: 20230529
